FAERS Safety Report 6189148-1 (Version None)
Quarter: 2009Q2

REPORT INFORMATION
  Report Type: 
  Country: None (occurrence: None)
  Receive Date: 20090513
  Receipt Date: 20090309
  Transmission Date: 20091009
  Serious: No
  Sender: FDA-Public Use
  Company Number: A0772339A

PATIENT
  Sex: Female

DRUGS (1)
  1. TREXIMET [Suspect]
     Route: 048

REACTIONS (1)
  - PARAESTHESIA [None]
